FAERS Safety Report 4440590-6 (Version None)
Quarter: 2004Q3

REPORT INFORMATION
  Report Type: 
  Country: None (occurrence: None)
  Receive Date: 20040901
  Receipt Date: 20040901
  Transmission Date: 20050211
  Serious: Yes (Hospitalization)
  Sender: FDA-Public Use
  Company Number: None

PATIENT
  Age: 56 Year
  Sex: Female
  Weight: 81.1939 kg

DRUGS (2)
  1. GEMZAR [Suspect]
     Indication: BREAST CANCER METASTATIC
     Dosage: 750 MG/M2 IV DAY 1, AND 8
     Route: 042
     Dates: start: 20040325, end: 20040820
  2. NAVELBINE [Suspect]
     Indication: BREAST CANCER METASTATIC
     Dosage: 18.75 MG/M2 IV DAY 1 AND 8
     Route: 042
     Dates: start: 20040325, end: 20040820

REACTIONS (5)
  - CONTUSION [None]
  - INFECTION [None]
  - LEUKOCYTOSIS [None]
  - PYREXIA [None]
  - ROAD TRAFFIC ACCIDENT [None]
